FAERS Safety Report 7725037-6 (Version None)
Quarter: 2011Q3

REPORT INFORMATION
  Report Type: 
  Country: None (occurrence: None)
  Receive Date: 20110901
  Receipt Date: 20110829
  Transmission Date: 20111222
  Serious: Yes (Hospitalization, Other)
  Sender: FDA-Public Use
  Company Number: US-ABBOTT-11P-163-0849938-00

PATIENT
  Sex: Male
  Weight: 99.88 kg

DRUGS (8)
  1. METHOTREXATE [Concomitant]
     Indication: RHEUMATOID ARTHRITIS
  2. FLECTOR [Concomitant]
     Indication: BACK PAIN
     Dosage: PATCHES
     Route: 061
  3. NAPRELAN [Concomitant]
     Indication: RHEUMATOID ARTHRITIS
  4. VOLTAREN [Concomitant]
     Indication: ARTHRALGIA
     Dosage: GEL
  5. ULORIC [Concomitant]
     Indication: GOUT
  6. HUMIRA [Suspect]
     Dates: start: 20110814
  7. HUMIRA [Suspect]
     Indication: RHEUMATOID ARTHRITIS
     Dates: start: 20060101
  8. LIPITOR [Concomitant]
     Indication: BLOOD CHOLESTEROL INCREASED
     Dates: start: 20110701

REACTIONS (4)
  - CORONARY ARTERY DISEASE [None]
  - CHEST PAIN [None]
  - INCISION SITE PAIN [None]
  - BLOOD PRESSURE INCREASED [None]
